FAERS Safety Report 21047905 (Version 1)
Quarter: 2022Q3

REPORT INFORMATION
  Report Type: Report from Study
  Country: US (occurrence: US)
  Receive Date: 20220706
  Receipt Date: 20220706
  Transmission Date: 20221027
  Serious: Yes (Hospitalization)
  Sender: FDA-Public Use
  Company Number: US-BRISTOL-MYERS SQUIBB COMPANY-2022-063160

PATIENT
  Age: 77 Year
  Sex: Female
  Weight: 54.43 kg

DRUGS (9)
  1. REVLIMID [Suspect]
     Active Substance: LENALIDOMIDE
     Indication: Plasma cell myeloma
     Dosage: DOSAGE FORM: REVLIMID CAPSULE 10 MG -28/BTL?FREQUENCY: 21 OUT OF 28 DAYS.
     Route: 048
     Dates: start: 201908
  2. ASPIRIN [Concomitant]
     Active Substance: ASPIRIN
  3. PANTAKIND [PANTOPRAZOLE] [Concomitant]
  4. CALCIUM [Concomitant]
     Active Substance: CALCIUM
  5. VITAMIN D3 [Concomitant]
     Active Substance: CHOLECALCIFEROL
  6. ASTANOL [ATENOLOL] [Concomitant]
  7. VITAMINS [Concomitant]
     Active Substance: VITAMINS
  8. POTASSIUM CHLORIDE [Concomitant]
     Active Substance: POTASSIUM CHLORIDE
  9. AMLODIPINE BESYLATE [Concomitant]
     Active Substance: AMLODIPINE BESYLATE

REACTIONS (2)
  - Arthropathy [Unknown]
  - Prescribed underdose [Unknown]
